FAERS Safety Report 4316220-0 (Version None)
Quarter: 2004Q1

REPORT INFORMATION
  Report Type: 
  Country: None (occurrence: None)
  Receive Date: 20040312
  Receipt Date: 20030328
  Transmission Date: 20041129
  Serious: Yes (Life-Threatening, Hospitalization)
  Sender: FDA-Public Use
  Company Number: WAES 0303USA02789

PATIENT
  Age: 45 Year
  Sex: Male
  Weight: 107 kg

DRUGS (10)
  1. LORTAB [Concomitant]
     Indication: PAIN
     Dates: start: 19990401, end: 20030101
  2. ASCORBIC ACID [Concomitant]
     Dates: start: 19990401
  3. ASPIRIN [Concomitant]
  4. UNIRETIC [Concomitant]
  5. VIOXX [Suspect]
     Indication: BACK PAIN
     Route: 048
     Dates: start: 19991209, end: 20010101
  6. VIOXX [Suspect]
     Route: 048
     Dates: start: 20010101, end: 20020201
  7. VIOXX [Suspect]
     Indication: JOINT STIFFNESS
     Route: 048
     Dates: start: 19991209, end: 20010101
  8. VIOXX [Suspect]
     Route: 048
     Dates: start: 20010101, end: 20020201
  9. VITAMIN B COMPLEX [Concomitant]
     Route: 048
     Dates: start: 19990401
  10. VITAMINS (UNSPECIFIED) [Concomitant]
     Dates: start: 19990401

REACTIONS (11)
  - ASTHENIA [None]
  - BLOOD PRESSURE INCREASED [None]
  - DEPRESSION [None]
  - DERMATITIS ALLERGIC [None]
  - DIVERTICULUM INTESTINAL HAEMORRHAGIC [None]
  - GASTROINTESTINAL TRACT ADENOMA [None]
  - LARGE INTESTINAL ULCER HAEMORRHAGE [None]
  - LOWER GASTROINTESTINAL HAEMORRHAGE [None]
  - MUSCLE CRAMP [None]
  - REFUSAL OF TREATMENT BY PATIENT [None]
  - ROAD TRAFFIC ACCIDENT [None]
